FAERS Safety Report 24964848 (Version 1)
Quarter: 2025Q1

REPORT INFORMATION
  Report Type: Spontaneous
  Country: FR (occurrence: FR)
  Receive Date: 20250213
  Receipt Date: 20250213
  Transmission Date: 20250408
  Serious: Yes (Hospitalization)
  Sender: ACCORD
  Company Number: None

PATIENT
  Age: 59 Year
  Sex: Male
  Weight: 75 kg

DRUGS (7)
  1. FLUOROURACIL [Suspect]
     Active Substance: FLUOROURACIL
     Indication: Metastases to lung
     Dates: start: 20230125, end: 20230412
  2. IRINOTECAN [Suspect]
     Active Substance: IRINOTECAN
     Indication: Metastases to lung
     Dates: start: 20230907, end: 20231030
  3. GEMZAR [Suspect]
     Active Substance: GEMCITABINE HYDROCHLORIDE
     Indication: Metastases to lung
     Dates: start: 20240214, end: 20240813
  4. ABRAXANE [Suspect]
     Active Substance: PACLITAXEL
     Indication: Metastases to lung
     Dosage: STRENGTH: 5 MG/ML,  POWDER FOR SUSPENSION FOR INJECTION FOR INFUSION
     Dates: start: 20240214, end: 20240312
  5. ABRAXANE [Suspect]
     Active Substance: PACLITAXEL
     Indication: Metastases to lung
     Dosage: STRENGTH: 5 MG/ML,  POWDER FOR SUSPENSION FOR INJECTION FOR INFUSION
     Dates: start: 20240319, end: 20240423
  6. ABRAXANE [Suspect]
     Active Substance: PACLITAXEL
     Indication: Metastases to lung
     Dosage: STRENGTH: 5 MG/ML,  POWDER FOR SUSPENSION FOR INJECTION FOR INFUSION
     Dates: start: 20240514, end: 20240813
  7. FLUOROURACIL [Suspect]
     Active Substance: FLUOROURACIL
     Indication: Metastases to lung
     Dates: start: 20230907, end: 20231030

REACTIONS (2)
  - Interstitial lung disease [Recovering/Resolving]
  - Organising pneumonia [Recovering/Resolving]

NARRATIVE: CASE EVENT DATE: 20240823
